FAERS Safety Report 24081768 (Version 1)
Quarter: 2024Q3

REPORT INFORMATION
  Report Type: Spontaneous
  Country: US (occurrence: US)
  Receive Date: 20240712
  Receipt Date: 20240712
  Transmission Date: 20241017
  Serious: Yes (Other)
  Sender: SANDOZ
  Company Number: US-SANDOZ-SDZ2023US008935

PATIENT
  Sex: Male

DRUGS (4)
  1. CELECOXIB [Suspect]
     Active Substance: CELECOXIB
     Indication: Psoriasis
     Dosage: UNK
     Route: 065
  2. CLOBETASOL [Suspect]
     Active Substance: CLOBETASOL
     Indication: Psoriasis
     Dosage: UNK
     Route: 065
  3. TACROLIMUS [Suspect]
     Active Substance: TACROLIMUS
     Indication: Psoriasis
     Dosage: UNK
     Route: 065
  4. TRIAMCINOLONE [Suspect]
     Active Substance: TRIAMCINOLONE
     Indication: Psoriasis
     Dosage: UNK
     Route: 065

REACTIONS (12)
  - Psoriatic arthropathy [Unknown]
  - Arthralgia [Unknown]
  - Skin discolouration [Unknown]
  - Accident [Unknown]
  - Cough [Unknown]
  - Psoriasis [Unknown]
  - Skin plaque [Not Recovered/Not Resolved]
  - Papule [Unknown]
  - Dry skin [Recovered/Resolved]
  - Skin exfoliation [Unknown]
  - Product use in unapproved indication [Unknown]
  - Drug ineffective [Unknown]
